FAERS Safety Report 10271560 (Version 1)
Quarter: 2014Q3

REPORT INFORMATION
  Report Type: Spontaneous
  Country: US (occurrence: US)
  Receive Date: 20140701
  Receipt Date: 20140701
  Transmission Date: 20150326
  Serious: Yes (Other)
  Sender: FDA-Public Use
  Company Number: US-BAXTER-2014BAX034802

PATIENT
  Age: 48 Year
  Sex: Female

DRUGS (1)
  1. CEFEPIME [Suspect]
     Active Substance: CEFEPIME\CEFEPIME HYDROCHLORIDE
     Indication: NEUTROPENIA
     Route: 065

REACTIONS (1)
  - Posterior reversible encephalopathy syndrome [Recovering/Resolving]
